FAERS Safety Report 5484294-X (Version None)
Quarter: 2007Q4

REPORT INFORMATION
  Report Type: 
  Country: None (occurrence: None)
  Receive Date: 20071012
  Receipt Date: 20071009
  Transmission Date: 20080405
  Serious: Yes (Life-Threatening, Hospitalization)
  Sender: FDA-Public Use
  Company Number: US-BOEHRINGER INGELHEIM PHARMACEUTICALS, INC.-2007-BP-22386BP

PATIENT
  Age: 41 Year
  Sex: Male

DRUGS (1)
  1. ZANTAC 150 [Suspect]
     Indication: DYSPEPSIA
     Route: 048
     Dates: start: 20071001, end: 20071001

REACTIONS (1)
  - ANAPHYLACTIC SHOCK [None]
